FAERS Safety Report 7972604-0 (Version None)
Quarter: 2011Q4

REPORT INFORMATION
  Report Type: 
  Country: None (occurrence: None)
  Receive Date: 20111213
  Receipt Date: 20111201
  Transmission Date: 20120403
  Serious: Yes (Death)
  Sender: FDA-Public Use
  Company Number: ES-JNJFOC-20111107657

PATIENT
  Age: 57 Year
  Sex: Male
  Weight: 105 kg

DRUGS (7)
  1. STELARA [Suspect]
     Indication: PRODUCT USED FOR UNKNOWN INDICATION
     Route: 058
     Dates: start: 20100217
  2. ASPIRIN [Concomitant]
     Indication: ILL-DEFINED DISORDER
  3. ENALAPRIL MALEATE [Concomitant]
     Indication: ILL-DEFINED DISORDER
  4. ZOCOR [Concomitant]
     Indication: ILL-DEFINED DISORDER
  5. LIBRADIN [Concomitant]
     Indication: ILL-DEFINED DISORDER
  6. OMEPRAZOLE [Concomitant]
     Indication: ILL-DEFINED DISORDER
  7. ATENOLOL [Concomitant]
     Indication: ILL-DEFINED DISORDER

REACTIONS (1)
  - METASTATIC NEOPLASM [None]
